FAERS Safety Report 10310802 (Version 1)
Quarter: 2014Q3

REPORT INFORMATION
  Report Type: Spontaneous
  Country: IT (occurrence: None)
  Receive Date: 20140715
  Receipt Date: 20140715
  Transmission Date: 20150326
  Serious: Yes (Hospitalization)
  Sender: FDA-Public Use
  Company Number: 2014STPI000310

PATIENT
  Age: 74 Year
  Sex: Male

DRUGS (18)
  1. ALLOPURINOL (ALLOPURINOL) [Concomitant]
     Active Substance: ALLOPURINOL
  2. PRAZEPAM (PRAZEPAM) [Concomitant]
  3. DOXORUBICIN (DOXORUBICIN HYDROCHLORIDE) [Concomitant]
  4. BACTRIM (SULFAMETHOXAZOLE, TRIMETHOPRIM) [Concomitant]
  5. METEOXANE (AMOBARBITAL, ATROPA BELLADONNA EXTRACT, DIMETICONE, ERGOTAMINE TARTRATE) [Concomitant]
  6. VINCRISTINE TEVA (VINCRISTINE SULFATE) [Concomitant]
  7. PREDNISONE (PREDNISONE) [Concomitant]
     Active Substance: PREDNISONE
  8. CYCLOPHOSPHAMIDE (CYCLOPHOSPHAMIDE) [Concomitant]
     Active Substance: CYCLOPHOSPHAMIDE
  9. XARELTO [Concomitant]
     Active Substance: RIVAROXABAN
  10. RABEPRAZOLE NA (RABEPRAZOLE SODIUM) [Concomitant]
  11. VINBLASTINE [Suspect]
     Active Substance: VINBLASTINE
     Route: 042
  12. BLEOMYCIN [Suspect]
     Active Substance: BLEOMYCIN SULFATE
  13. VALACYCLOVIR [Concomitant]
     Active Substance: VALACYCLOVIR HYDROCHLORIDE
  14. ZOLPIDEM [Concomitant]
     Active Substance: ZOLPIDEM\ZOLPIDEM TARTRATE
  15. BISOPROLOL (BISOPROLOL FUMARATE, HYDROCHLOROTHIAZIDE) [Concomitant]
  16. MATULANE [Suspect]
     Active Substance: PROCARBAZINE HYDROCHLORIDE
     Indication: PRODUCT USED FOR UNKNOWN INDICATION
     Route: 048
  17. CORDARONE [Suspect]
     Active Substance: AMIODARONE HYDROCHLORIDE
     Indication: ATRIAL FIBRILLATION
     Route: 048
     Dates: start: 20140101, end: 20140317
  18. FUROSEMIDE (FUROSEMIDE) [Concomitant]
     Active Substance: FUROSEMIDE

REACTIONS (6)
  - Dysphonia [None]
  - Endotracheal intubation complication [None]
  - Lung disorder [None]
  - Febrile neutropenia [None]
  - Acute respiratory distress syndrome [None]
  - Thrombocytopenia [None]

NARRATIVE: CASE EVENT DATE: 20140310
